FAERS Safety Report 26017645 (Version 1)
Quarter: 2025Q4

REPORT INFORMATION
  Report Type: Spontaneous
  Country: US (occurrence: US)
  Receive Date: 20251110
  Receipt Date: 20251110
  Transmission Date: 20260117
  Serious: Yes (Other)
  Sender: LUPIN
  Company Number: US-LUPIN PHARMACEUTICALS INC.-2025-10076

PATIENT
  Age: 3 Decade
  Sex: Female

DRUGS (9)
  1. PROPRANOLOL HYDROCHLORIDE [Interacting]
     Active Substance: PROPRANOLOL HYDROCHLORIDE
     Indication: Panic attack
     Dosage: UNK (LOW DOSE)
     Route: 065
  2. PROPRANOLOL HYDROCHLORIDE [Interacting]
     Active Substance: PROPRANOLOL HYDROCHLORIDE
     Indication: Postural orthostatic tachycardia syndrome
  3. PROPRANOLOL HYDROCHLORIDE [Interacting]
     Active Substance: PROPRANOLOL HYDROCHLORIDE
     Indication: Autonomic nervous system imbalance
  4. PREGABALIN [Interacting]
     Active Substance: PREGABALIN
     Indication: Pain
     Dosage: UNK
     Route: 065
  5. PREGABALIN [Interacting]
     Active Substance: PREGABALIN
     Indication: Generalised anxiety disorder
  6. DULOXETINE [Suspect]
     Active Substance: DULOXETINE
     Indication: Generalised anxiety disorder
     Dosage: UNK
     Route: 065
  7. LISDEXAMFETAMINE [Concomitant]
     Active Substance: LISDEXAMFETAMINE
     Indication: Attention deficit hyperactivity disorder
     Dosage: UNK
     Route: 065
  8. LISDEXAMFETAMINE [Concomitant]
     Active Substance: LISDEXAMFETAMINE
     Indication: Fatigue
  9. LISDEXAMFETAMINE [Concomitant]
     Active Substance: LISDEXAMFETAMINE
     Indication: Cognitive disorder

REACTIONS (4)
  - Fatigue [Recovering/Resolving]
  - Drug interaction [Unknown]
  - Off label use [Unknown]
  - Therapeutic product effect incomplete [Unknown]
